FAERS Safety Report 9133574 (Version 1)
Quarter: 2013Q1

REPORT INFORMATION
  Report Type: Spontaneous
  Country: US (occurrence: US)
  Receive Date: 20130116
  Receipt Date: 20130116
  Transmission Date: 20140127
  Serious: Yes (Other)
  Sender: FDA-Public Use
  Company Number: CHPA2013US000797

PATIENT
  Age: 75 Year
  Sex: Female

DRUGS (1)
  1. EXCEDRIN EXTRA STRENGTH [Suspect]
     Indication: MIGRAINE
     Dosage: 1 PILL, UNK
     Route: 048

REACTIONS (4)
  - Wrist fracture [Unknown]
  - Lower limb fracture [Unknown]
  - Activities of daily living impaired [Unknown]
  - Therapeutic response unexpected [Unknown]
